FAERS Safety Report 8317244-9 (Version None)
Quarter: 2012Q2

REPORT INFORMATION
  Report Type: 
  Country: None (occurrence: None)
  Receive Date: 20120425
  Receipt Date: 20120411
  Transmission Date: 20120825
  Serious: Yes (Death)
  Sender: FDA-Public Use
  Company Number: TPA2012A01402

PATIENT
  Age: 70 Year
  Sex: Male

DRUGS (16)
  1. DIAGLICO (GLICLAZIDE) [Concomitant]
  2. CRESTOR [Concomitant]
  3. ENALAPRIL MALEATE [Concomitant]
  4. TAMSLON (TAMSULOSIN HYDROCHLORIDE) [Concomitant]
  5. RABEPRAZOLE SODIUM [Concomitant]
  6. FEBURIC (FEBOXOSTAT) [Suspect]
     Indication: HYPERURICAEMIA
     Dosage: 10 MG (ONCE EVERY OTHER DAY) PER ORAL
     Route: 048
     Dates: start: 20110901, end: 20120306
  7. LASIX [Concomitant]
  8. GLIMICRON (GLICLAZIDE) [Concomitant]
  9. LAMIRAPID (METILDIGOXIN) [Concomitant]
  10. ZOLPIDEM TARTRATE [Concomitant]
  11. LAXOBERON (SODIUM PICOSULFATE) [Concomitant]
  12. ASPIRIN [Concomitant]
  13. MEXITIL [Concomitant]
  14. WARFARIN SODIUM [Concomitant]
  15. CARVEDILOL [Concomitant]
  16. ALOSENN (ACHILLEA MILLEFOLIUM, SENNA ALEXANDRINA LEAF, SENNA ALEXANDRI [Concomitant]

REACTIONS (6)
  - BLOOD PRESSURE DECREASED [None]
  - VENTRICULAR ARRHYTHMIA [None]
  - LOSS OF CONSCIOUSNESS [None]
  - CARDIAC FAILURE CHRONIC [None]
  - CONDITION AGGRAVATED [None]
  - FALL [None]
